FAERS Safety Report 9224783 (Version 1)
Quarter: 2013Q2

REPORT INFORMATION
  Report Type: Spontaneous
  Country: US (occurrence: None)
  Receive Date: 20130409
  Receipt Date: 20130409
  Transmission Date: 20140414
  Serious: Yes (Life-Threatening, Hospitalization)
  Sender: FDA-Public Use
  Company Number: None

PATIENT
  Age: 59 Year
  Sex: Male

DRUGS (1)
  1. CEFUROXIME AXETIL [Suspect]
     Dosage: PO 1 OR 2 DAYS OF THERAPY
     Route: 048

REACTIONS (3)
  - Anaphylactic reaction [None]
  - Respiratory depression [None]
  - Hypotension [None]
